FAERS Safety Report 8882414 (Version 1)
Quarter: 2012Q4

REPORT INFORMATION
  Report Type: 
  Country: US (occurrence: US)
  Receive Date: 20121102
  Receipt Date: 20121102
  Transmission Date: 20130627
  Serious: Yes (Other)
  Sender: FDA-Public Use
  Company Number: US-PFIZER INC-2012273327

PATIENT
  Age: 54 Year
  Sex: Female
  Weight: 68.03 kg

DRUGS (2)
  1. EFFEXOR XR [Suspect]
     Indication: DEPRESSION
     Dosage: UNK, daily
     Dates: end: 201209
  2. EFFEXOR XR [Suspect]
     Indication: MENOPAUSE

REACTIONS (2)
  - Metastatic neoplasm [Unknown]
  - Intestinal obstruction [Not Recovered/Not Resolved]
